FAERS Safety Report 5144528-8 (Version None)
Quarter: 2006Q4

REPORT INFORMATION
  Report Type: 
  Country: None (occurrence: None)
  Receive Date: 20061030
  Receipt Date: 20061019
  Transmission Date: 20070319
  Serious: Yes (Other)
  Sender: FDA-Public Use
  Company Number: 2006127759

PATIENT
  Age: 42 Year
  Sex: Female
  Weight: 92.9874 kg

DRUGS (7)
  1. LIPITOR [Suspect]
     Indication: BLOOD CHOLESTEROL INCREASED
     Dosage: 20 MG (20 MG, 1 IN 1 D), ORAL
     Route: 048
     Dates: start: 20050101
  2. ATENOLOL [Concomitant]
  3. LOPID [Concomitant]
  4. BACTRIM DS [Concomitant]
  5. ACETYLSALICYLIC ACID SRT [Concomitant]
  6. MULTIVITAMIN [Concomitant]
  7. PREVACID [Concomitant]

REACTIONS (5)
  - BLOOD CHOLESTEROL INCREASED [None]
  - DIABETES MELLITUS [None]
  - DRUG EFFECT DECREASED [None]
  - RASH ERYTHEMATOUS [None]
  - RASH PRURITIC [None]
